FAERS Safety Report 17601889 (Version 6)
Quarter: 2021Q4

REPORT INFORMATION
  Report Type: Spontaneous
  Country: US (occurrence: US)
  Receive Date: 20200331
  Receipt Date: 20211130
  Transmission Date: 20220303
  Serious: Yes (Other)
  Sender: FDA-Public Use
  Company Number: US-GLAXOSMITHKLINE-US2020AMR054094

PATIENT
  Sex: Female

DRUGS (7)
  1. ZEJULA [Suspect]
     Active Substance: NIRAPARIB
     Indication: Ovarian cancer
     Dosage: 100 MG, QD
     Route: 048
     Dates: start: 20170706
  2. ZEJULA [Suspect]
     Active Substance: NIRAPARIB
     Indication: Malignant peritoneal neoplasm
     Dosage: 100 MG, QD
     Route: 048
  3. ZEJULA [Suspect]
     Active Substance: NIRAPARIB
     Dosage: 100 MG, QD
     Route: 048
  4. ZEJULA [Suspect]
     Active Substance: NIRAPARIB
     Dosage: 100 MG, QD
     Route: 048
     Dates: start: 20170725
  5. CLADRIBINE [Suspect]
     Active Substance: CLADRIBINE
     Indication: Osteoporosis
     Dosage: UNK
  6. RECLAST [Suspect]
     Active Substance: ZOLEDRONIC ACID
     Indication: Osteoporosis
     Dosage: UNK
  7. ACYCLOVIR [Concomitant]
     Active Substance: ACYCLOVIR
     Indication: Mouth ulceration
     Dosage: UNK

REACTIONS (14)
  - Precancerous condition [Unknown]
  - Near death experience [Unknown]
  - Rhinorrhoea [Not Recovered/Not Resolved]
  - Osteoporosis [Unknown]
  - Swelling [Unknown]
  - Tooth infection [Unknown]
  - Carbohydrate antigen 125 increased [Recovered/Resolved]
  - Sleep apnoea syndrome [Unknown]
  - Insomnia [Unknown]
  - Anxiety [Unknown]
  - Headache [Unknown]
  - Dysphonia [Unknown]
  - Weight decreased [Unknown]
  - Product dose omission issue [Unknown]
